FAERS Safety Report 6124769-3 (Version None)
Quarter: 2009Q1

REPORT INFORMATION
  Report Type: 
  Country: None (occurrence: None)
  Receive Date: 20090319
  Receipt Date: 20090313
  Transmission Date: 20090719
  Serious: Yes (Death, Life-Threatening, Hospitalization)
  Sender: FDA-Public Use
  Company Number: AR-GENENTECH-279217

PATIENT
  Sex: Male

DRUGS (3)
  1. RAPTIVA [Suspect]
     Indication: DRUG USE FOR UNKNOWN INDICATION
     Dosage: 125 MG, UNK
  2. ANTIHYPERTENSIVE DRUG [Concomitant]
     Indication: HYPERTENSION
     Dosage: UNK
  3. PROSTA FINK [Concomitant]
     Indication: PROSTATIC DISORDER
     Dosage: UNK

REACTIONS (3)
  - COMA [None]
  - DEATH [None]
  - VASCULAR NEOPLASM [None]
